FAERS Safety Report 7621062-4 (Version None)
Quarter: 2011Q3

REPORT INFORMATION
  Report Type: 
  Country: None (occurrence: None)
  Receive Date: 20110719
  Receipt Date: 20110217
  Transmission Date: 20111222
  Serious: No
  Sender: FDA-Public Use
  Company Number: US-KINGPHARMUSA00001-K201100188

PATIENT
  Age: 60 Year
  Sex: Female

DRUGS (2)
  1. CYTOMEL [Concomitant]
  2. LEVOXYL [Suspect]
     Indication: HYPOTHYROIDISM
     Dosage: 25 MCG, QAM
     Route: 048

REACTIONS (4)
  - ARTHRALGIA [None]
  - INSOMNIA [None]
  - PSYCHOMOTOR HYPERACTIVITY [None]
  - PAIN [None]
